FAERS Safety Report 22325261 (Version 6)
Quarter: 2024Q1

REPORT INFORMATION
  Report Type: Other
  Country: DE (occurrence: None)
  Receive Date: 20230516
  Receipt Date: 20240312
  Transmission Date: 20240410
  Serious: Yes (Other)
  Sender: FDA-Public Use
  Company Number: DE-ROCHE-3348111

PATIENT
  Age: 27 Year
  Sex: Female

DRUGS (2)
  1. OCREVUS [Suspect]
     Active Substance: OCRELIZUMAB
     Indication: Relapsing multiple sclerosis
     Route: 042
     Dates: start: 20200429, end: 20200512
  2. OCREVUS [Suspect]
     Active Substance: OCRELIZUMAB
     Dosage: MOST RECENT DOSE PRIOR TO THE EVENT WAS GIVEN ON 29/AUG/2022.
     Route: 042
     Dates: start: 20201019

REACTIONS (2)
  - Arthritis reactive [Not Recovered/Not Resolved]
  - Abdominal infection [Recovered/Resolved]

NARRATIVE: CASE EVENT DATE: 20220901
